FAERS Safety Report 7268675-X (Version None)
Quarter: 2011Q1

REPORT INFORMATION
  Report Type: 
  Country: None (occurrence: None)
  Receive Date: 20110121
  Receipt Date: 20110110
  Transmission Date: 20110831
  Serious: Yes (Hospitalization, Other)
  Sender: FDA-Public Use
  Company Number: 017769

PATIENT
  Sex: Male
  Weight: 43 kg

DRUGS (5)
  1. XATRAL /00975301/ [Concomitant]
  2. MOTILIUM /00498201/ [Concomitant]
  3. SONDALIS HP [Concomitant]
  4. DUROGESIC (08/20/20 [Concomitant]
  5. KEPPRA [Suspect]
     Indication: EPILEPSY
     Dosage: (750 MG, DAILY DOSE: 250MG + 500MG ORAL)
     Route: 048
     Dates: start: 20100820, end: 20100825

REACTIONS (7)
  - CHOLELITHIASIS [None]
  - LUNG DISORDER [None]
  - BLOOD UREA DECREASED [None]
  - INFLAMMATION [None]
  - CHOLESTASIS [None]
  - CYTOLYTIC HEPATITIS [None]
  - HEPATOMEGALY [None]
